FAERS Safety Report 5353079-7 (Version None)
Quarter: 2007Q2

REPORT INFORMATION
  Report Type: 
  Country: None (occurrence: None)
  Receive Date: 20070611
  Receipt Date: 20070530
  Transmission Date: 20071010
  Serious: Yes (Other)
  Sender: FDA-Public Use
  Company Number: GB-PFIZER INC-2007045020

PATIENT
  Sex: Female

DRUGS (1)
  1. CABERGOLINE [Suspect]
     Indication: PROLACTINOMA
     Dosage: DAILY DOSE:500MCG/KG

REACTIONS (1)
  - MITRAL VALVE INCOMPETENCE [None]
